FAERS Safety Report 13122814 (Version 1)
Quarter: 2017Q1

REPORT INFORMATION
  Report Type: Spontaneous
  Country: DE (occurrence: DE)
  Receive Date: 20170117
  Receipt Date: 20170117
  Transmission Date: 20170428
  Serious: Yes (Hospitalization)
  Sender: FDA-Public Use
  Company Number: DE-TEVA-727326GER

PATIENT
  Age: 3 Year
  Sex: Male
  Weight: 17.7 kg

DRUGS (2)
  1. SALBUBRONCH ELIXIER [Concomitant]
     Active Substance: ALBUTEROL SULFATE
     Indication: BRONCHITIS
     Route: 048
  2. SALBUTAMOL-RATIOPHARM [Suspect]
     Active Substance: ALBUTEROL
     Indication: BRONCHITIS
     Dosage: 75 GTT DAILY; TOTAL
     Route: 048
     Dates: start: 20161111

REACTIONS (5)
  - Hyperhidrosis [Recovered/Resolved]
  - Abnormal behaviour [Recovered/Resolved]
  - Product name confusion [Recovered/Resolved]
  - Product packaging confusion [Recovered/Resolved]
  - Incorrect route of drug administration [None]

NARRATIVE: CASE EVENT DATE: 20161210
